FAERS Safety Report 22528368 (Version 1)
Quarter: 2023Q2

REPORT INFORMATION
  Report Type: Spontaneous
  Country: NL (occurrence: NL)
  Receive Date: 20230607
  Receipt Date: 20230607
  Transmission Date: 20230722
  Serious: Yes (Other)
  Sender: FDA-Public Use
  Company Number: NL-CHEPLA-2023006670

PATIENT
  Age: 56 Year
  Sex: Male

DRUGS (1)
  1. CAPECITABINE [Suspect]
     Active Substance: CAPECITABINE
     Indication: Rectal cancer
     Dosage: 825-1000 MG/M2 TWICE DAILY,NEOADJUVANT CHEMORADIOTHERAPY,5.5 WEEKS

REACTIONS (1)
  - Musculoskeletal disorder [Unknown]
